FAERS Safety Report 6746227-5 (Version None)
Quarter: 2010Q2

REPORT INFORMATION
  Report Type: 
  Country: None (occurrence: None)
  Receive Date: 20100528
  Receipt Date: 20090601
  Transmission Date: 20101027
  Serious: No
  Sender: FDA-Public Use
  Company Number: US-ASTRAZENECA-2009UW13844

PATIENT
  Age: 52 Year
  Sex: Female

DRUGS (1)
  1. PRILOSEC [Suspect]
     Route: 048
     Dates: start: 20090427

REACTIONS (2)
  - DYSPEPSIA [None]
  - VOMITING [None]
